APPROVED DRUG PRODUCT: DIPHENHYDRAMINE HYDROCHLORIDE
Active Ingredient: DIPHENHYDRAMINE HYDROCHLORIDE
Strength: 12.5MG/5ML
Dosage Form/Route: ELIXIR;ORAL
Application: A083063 | Product #001
Applicant: L PERRIGO CO
Approved: Approved Prior to Jan 1, 1982 | RLD: No | RS: No | Type: DISCN